FAERS Safety Report 8538011-7 (Version None)
Quarter: 2012Q3

REPORT INFORMATION
  Report Type: 
  Country: None (occurrence: None)
  Receive Date: 20120725
  Receipt Date: 20120720
  Transmission Date: 20120928
  Serious: Yes (Death, Other)
  Sender: FDA-Public Use
  Company Number: PHHY2012US063152

PATIENT
  Age: 82 Year
  Sex: Male

DRUGS (1)
  1. ACETYLSALICYLIC ACID SRT [Suspect]
     Indication: BLOOD DISORDER
     Dosage: 1 DF, DAILY
     Route: 048
     Dates: start: 20070101, end: 20110101

REACTIONS (3)
  - NEOPLASM MALIGNANT [None]
  - INCORRECT DRUG ADMINISTRATION DURATION [None]
  - DEATH [None]
